FAERS Safety Report 7254039-1 (Version None)
Quarter: 2011Q1

REPORT INFORMATION
  Report Type: 
  Country: None (occurrence: None)
  Receive Date: 20110129
  Receipt Date: 20100318
  Transmission Date: 20110831
  Serious: No
  Sender: FDA-Public Use
  Company Number: US-ABBOTT-10P-163-0633684-00

PATIENT
  Sex: Male
  Weight: 59.02 kg

DRUGS (3)
  1. HUMIRA [Suspect]
     Indication: ECZEMA
     Dates: start: 20091103, end: 20100222
  2. UNKNOWN MEDICATIONS [Concomitant]
     Indication: ASTHMA
  3. METHOTREXATE [Concomitant]
     Indication: ECZEMA

REACTIONS (6)
  - PALPITATIONS [None]
  - ANXIETY [None]
  - PRESYNCOPE [None]
  - CHEST DISCOMFORT [None]
  - ECZEMA [None]
  - HYPERTENSION [None]
